FAERS Safety Report 14252098 (Version 2)
Quarter: 2017Q4

REPORT INFORMATION
  Report Type: Spontaneous
  Country: US (occurrence: US)
  Receive Date: 20171205
  Receipt Date: 20171205
  Transmission Date: 20180321
  Serious: No
  Sender: FDA-Public Use
  Company Number: PHEH2017US038561

PATIENT
  Sex: Female

DRUGS (6)
  1. OXYCODONE HYDROCHLORIDE. [Concomitant]
     Active Substance: OXYCODONE HYDROCHLORIDE
     Indication: PRODUCT USED FOR UNKNOWN INDICATION
     Dosage: UNK
     Route: 065
     Dates: start: 201705
  2. TEGRETOL [Suspect]
     Active Substance: CARBAMAZEPINE
     Indication: NEURALGIA
     Dosage: UNK
     Route: 065
     Dates: start: 201705
  3. BACLOFEN. [Concomitant]
     Active Substance: BACLOFEN
     Indication: PRODUCT USED FOR UNKNOWN INDICATION
     Dosage: UNK
     Route: 065
     Dates: start: 20141120
  4. GABAPENTIN. [Suspect]
     Active Substance: GABAPENTIN
     Indication: NEURALGIA
     Dosage: 200 MG, TID
     Route: 065
     Dates: start: 201701
  5. GABAPENTIN. [Suspect]
     Active Substance: GABAPENTIN
     Indication: MYELITIS TRANSVERSE
  6. TEGRETOL [Suspect]
     Active Substance: CARBAMAZEPINE
     Indication: MYELITIS TRANSVERSE

REACTIONS (2)
  - Feeling abnormal [Recovering/Resolving]
  - Hypoaesthesia oral [Recovering/Resolving]
